FAERS Safety Report 15676615 (Version 1)
Quarter: 2018Q4

REPORT INFORMATION
  Report Type: Spontaneous
  Country: JP (occurrence: JP)
  Receive Date: 20181130
  Receipt Date: 20181130
  Transmission Date: 20190205
  Serious: Yes (Other)
  Sender: FDA-Public Use
  Company Number: JP-ASTRAZENECA-2018SF57081

PATIENT
  Age: 74 Year
  Sex: Male

DRUGS (3)
  1. SEROQUEL [Suspect]
     Active Substance: QUETIAPINE FUMARATE
     Indication: INSOMNIA
     Route: 048
     Dates: start: 20180831, end: 20180901
  2. DORAL [Concomitant]
     Active Substance: QUAZEPAM
  3. HALCION [Concomitant]
     Active Substance: TRIAZOLAM

REACTIONS (10)
  - Cellulitis [Recovered/Resolved]
  - Gait inability [Not Recovered/Not Resolved]
  - Arthralgia [Not Recovered/Not Resolved]
  - Pyrexia [Recovered/Resolved]
  - Off label use [Unknown]
  - Coma [Recovering/Resolving]
  - Depressed level of consciousness [Recovering/Resolving]
  - Performance status decreased [Recovering/Resolving]
  - Sepsis [Recovering/Resolving]
  - Asthenia [Recovering/Resolving]

NARRATIVE: CASE EVENT DATE: 2018
